FAERS Safety Report 10408755 (Version 1)
Quarter: 2014Q3

REPORT INFORMATION
  Report Type: Spontaneous
  Country: US (occurrence: None)
  Receive Date: 20140825
  Receipt Date: 20140825
  Transmission Date: 20150326
  Serious: Yes (Other)
  Sender: FDA-Public Use
  Company Number: None

PATIENT
  Age: 62 Year
  Sex: Female

DRUGS (1)
  1. ADCIRCA [Suspect]
     Active Substance: TADALAFIL
     Indication: PULMONARY HYPERTENSION
     Dosage: ORAL 047 40 MG ( 2 OF 20 MG) BID
     Route: 048
     Dates: start: 20140817

REACTIONS (2)
  - Chest pain [None]
  - Liver disorder [None]

NARRATIVE: CASE EVENT DATE: 20140821
